FAERS Safety Report 18057042 (Version 1)
Quarter: 2020Q3

REPORT INFORMATION
  Report Type: Spontaneous
  Country: US (occurrence: US)
  Receive Date: 20200722
  Receipt Date: 20200722
  Transmission Date: 20201103
  Serious: No
  Sender: FDA-Public Use
  Company Number: US-DERMIRA, INC.-US-2020DER000113

PATIENT
  Age: 55 Year
  Sex: Female
  Weight: 61.22 kg

DRUGS (1)
  1. QBREXZA [Suspect]
     Active Substance: GLYCOPYRRONIUM TOSYLATE
     Indication: HYPERHIDROSIS
     Dosage: UNK, QD
     Route: 061
     Dates: start: 202003, end: 202003

REACTIONS (3)
  - Paraesthesia [Recovered/Resolved]
  - Off label use [Unknown]
  - Application site pain [Recovered/Resolved]

NARRATIVE: CASE EVENT DATE: 202003
